FAERS Safety Report 8579585-X (Version None)
Quarter: 2012Q3

REPORT INFORMATION
  Report Type: 
  Country: None (occurrence: None)
  Receive Date: 20120808
  Receipt Date: 20120803
  Transmission Date: 20120928
  Serious: Yes (Other)
  Sender: FDA-Public Use
  Company Number: US-JNJFOC-20120706938

PATIENT
  Sex: Male
  Weight: 111.13 kg

DRUGS (26)
  1. BUPROPION HCL [Concomitant]
     Dosage: 1 IN MORNING
     Route: 065
  2. CIALIS [Concomitant]
     Route: 065
  3. AVALIDE [Concomitant]
     Dosage: 300/12.5 MG
     Route: 065
  4. STELARA [Suspect]
     Indication: PSORIASIS
     Route: 058
     Dates: start: 20100510
  5. STELARA [Suspect]
     Route: 058
     Dates: start: 20110101
  6. CARDIZEM CD [Concomitant]
     Route: 065
  7. MULTI-VITAMINS [Concomitant]
     Route: 065
  8. GLUCOPHAGE [Concomitant]
     Dosage: 2 IN MORNING AND 2 AT NIGHT
     Route: 065
  9. JANUVIA [Concomitant]
     Dosage: 1 IN MORNING
     Route: 065
  10. CARTIA XT [Concomitant]
     Dosage: ALTERNATE DAILY WITH CARDIZEM CD
     Route: 065
  11. LIPITOR [Concomitant]
     Route: 065
  12. FLONASE [Concomitant]
     Dosage: 1 PUFF
     Route: 065
  13. CLOBETASOL PROPIONATE [Concomitant]
     Dosage: APPLIED TO SCALP AS NEEDED
     Route: 065
  14. BENADRYL [Concomitant]
     Dosage: 1 TO 2 AT NIGHT
     Route: 065
  15. VITAMIN D [Concomitant]
     Route: 065
  16. HUMALOG [Concomitant]
     Dosage: 16 UNITS IN MORNING
     Route: 065
  17. AMARYL [Concomitant]
     Dosage: 1/2 IN MORNING
     Route: 065
  18. ERYTHROMYCIN [Concomitant]
     Dosage: AS NEEDED
     Route: 061
  19. ULTRAM [Concomitant]
     Dosage: 1 TO 2 TABLETS
     Route: 065
  20. SALMON OIL [Concomitant]
     Route: 065
  21. DEXILANT [Concomitant]
     Dosage: 1 IN MORNING
     Route: 065
  22. ASPIRIN [Concomitant]
     Route: 065
  23. ALL OTHER THERAPEUTIC PRODUCTS [Concomitant]
     Indication: PSORIASIS
     Dosage: EVENING AS NEEDED
     Route: 065
  24. CICLOPIROX [Concomitant]
     Dosage: AS NEEDED
     Route: 065
  25. MAGNESIUM [Concomitant]
     Route: 065
  26. CALCIUM [Concomitant]
     Route: 065

REACTIONS (1)
  - SQUAMOUS CELL CARCINOMA [None]
